FAERS Safety Report 6158834-1 (Version None)
Quarter: 2009Q2

REPORT INFORMATION
  Report Type: 
  Country: None (occurrence: None)
  Receive Date: 20090408
  Receipt Date: 20090116
  Transmission Date: 20091009
  Serious: Yes (Death)
  Sender: FDA-Public Use
  Company Number: BMS-LI-2009-0006-V001

PATIENT
  Age: 57 Year
  Sex: Male

DRUGS (1)
  1. TRAZODONE HYDROCHLORIDE [Suspect]

REACTIONS (3)
  - CARDIAC ARREST [None]
  - COMPLETED SUICIDE [None]
  - RESPIRATORY ARREST [None]
